FAERS Safety Report 11346591 (Version 1)
Quarter: 2015Q3

REPORT INFORMATION
  Report Type: Spontaneous
  Country: US (occurrence: US)
  Receive Date: 20150803
  Receipt Date: 20150803
  Transmission Date: 20151125
  Serious: No
  Sender: FDA-Public Use
  Company Number: US-ELI_LILLY_AND_COMPANY-US201009000081

PATIENT
  Sex: Male

DRUGS (3)
  1. PRISTIQ EXTENDED RELEASE [Concomitant]
     Active Substance: DESVENLAFAXINE SUCCINATE
  2. KLONOPIN [Concomitant]
     Active Substance: CLONAZEPAM
  3. ZYPREXA [Suspect]
     Active Substance: OLANZAPINE

REACTIONS (2)
  - Restlessness [Unknown]
  - Anxiety [Unknown]
